FAERS Safety Report 5772289-8 (Version None)
Quarter: 2008Q2

REPORT INFORMATION
  Report Type: 
  Country: None (occurrence: None)
  Receive Date: 20080610
  Receipt Date: 20080530
  Transmission Date: 20081010
  Serious: No
  Sender: FDA-Public Use
  Company Number: 2008AP001006

PATIENT
  Age: 15 Year
  Sex: Male

DRUGS (2)
  1. CETIRIZINE HCL [Suspect]
     Indication: SEASONAL ALLERGY
     Dosage: 10 MG; QD; PO
     Route: 048
     Dates: start: 20080415, end: 20080416
  2. OLOPATADINE [Concomitant]

REACTIONS (1)
  - URETHRAL SPASM [None]
